FAERS Safety Report 5836228-3 (Version None)
Quarter: 2008Q3

REPORT INFORMATION
  Report Type: 
  Country: None (occurrence: None)
  Receive Date: 20080806
  Receipt Date: 20080728
  Transmission Date: 20090109
  Serious: Yes (Death, Hospitalization)
  Sender: FDA-Public Use
  Company Number: GB-RANBAXY-2007RR-06827

PATIENT

DRUGS (3)
  1. IBUPROFEN TABLETS [Suspect]
     Route: 065
  2. ACETAMINOPHEN [Suspect]
     Dosage: 10 G, UNK
     Route: 048
  3. SODIUM SALICYLATE ECT [Suspect]
     Route: 065

REACTIONS (4)
  - HEPATOTOXICITY [None]
  - LIVER DISORDER [None]
  - OVERDOSE [None]
  - SEPSIS [None]
